FAERS Safety Report 6256589-3 (Version None)
Quarter: 2009Q3

REPORT INFORMATION
  Report Type: 
  Country: None (occurrence: None)
  Receive Date: 20090706
  Receipt Date: 20090625
  Transmission Date: 20100115
  Serious: Yes (Hospitalization)
  Sender: FDA-Public Use
  Company Number: IT-BAYER-200924193GPV

PATIENT
  Age: 83 Year
  Sex: Female

DRUGS (5)
  1. CIPROFLOXACIN HCL [Suspect]
     Indication: URINARY TRACT INFECTION
     Dosage: UNIT DOSE: 500 MG
     Route: 048
     Dates: start: 20090517, end: 20090517
  2. ZYLORIC [Suspect]
     Indication: HYPERURICAEMIA
     Dosage: UNIT DOSE: 100 MG
     Route: 048
     Dates: start: 20090423, end: 20090525
  3. KANRENOL [Suspect]
     Indication: CARDIAC FAILURE
     Dosage: UNIT DOSE: 100 MG
     Route: 048
     Dates: start: 20090423, end: 20090526
  4. COUMADIN [Concomitant]
     Indication: ANTICOAGULANT THERAPY
     Route: 048
  5. LASIX [Concomitant]
     Indication: CARDIAC FAILURE
     Route: 048

REACTIONS (1)
  - DERMATITIS EXFOLIATIVE [None]
